FAERS Safety Report 16717526 (Version 1)
Quarter: 2019Q3

REPORT INFORMATION
  Report Type: Spontaneous
  Country: US (occurrence: US)
  Receive Date: 20190702
  Receipt Date: 20190702
  Transmission Date: 20191005
  Serious: No
  Sender: FDA-Public Use
  Company Number: None

PATIENT
  Age: 35 Year
  Sex: Female

DRUGS (4)
  1. LOSARTAN. [Concomitant]
     Active Substance: LOSARTAN
     Dates: start: 20180711
  2. PREDNISONE. [Concomitant]
     Active Substance: PREDNISONE
     Dates: start: 20180711
  3. BENLYSTA [Suspect]
     Active Substance: BELIMUMAB
     Dates: start: 201807
  4. AMLODIPINE [Concomitant]
     Active Substance: AMLODIPINE BESYLATE
     Dates: start: 20180711

REACTIONS (2)
  - Product storage error [None]
  - Product dose omission [None]

NARRATIVE: CASE EVENT DATE: 20190627
